FAERS Safety Report 23690766 (Version 1)
Quarter: 2024Q2

REPORT INFORMATION
  Report Type: Spontaneous
  Country: TW (occurrence: TW)
  Receive Date: 20240401
  Receipt Date: 20240401
  Transmission Date: 20240715
  Serious: Yes (Other)
  Sender: FDA-Public Use
  Company Number: TW-STERISCIENCE B.V.-2024-ST-000331

PATIENT
  Age: 51 Year
  Sex: Male

DRUGS (1)
  1. GANCICLOVIR SODIUM [Suspect]
     Active Substance: GANCICLOVIR SODIUM
     Indication: Cytomegalovirus chorioretinitis
     Dosage: UNK
     Route: 042

REACTIONS (1)
  - Myelosuppression [Unknown]
